FAERS Safety Report 5059424-4 (Version None)
Quarter: 2006Q3

REPORT INFORMATION
  Report Type: 
  Country: None (occurrence: None)
  Receive Date: 20060718
  Receipt Date: 20060705
  Transmission Date: 20061208
  Serious: Yes (Other)
  Sender: FDA-Public Use
  Company Number: 2006AP000456

PATIENT
  Age: 59 Year
  Sex: Female

DRUGS (2)
  1. CAPTOPRIL [Suspect]
     Indication: HYPERTENSION
     Dosage: SEE IMAGE
     Route: 048
  2. ADALAT CC [Suspect]
     Dosage: 60 MG; CAP; PO; QD
     Route: 048

REACTIONS (1)
  - ANGIONEUROTIC OEDEMA [None]
